FAERS Safety Report 5453058-5 (Version None)
Quarter: 2007Q3

REPORT INFORMATION
  Report Type: 
  Country: None (occurrence: None)
  Receive Date: 20070914
  Receipt Date: 20070912
  Transmission Date: 20080115
  Serious: Yes (Life-Threatening, Hospitalization)
  Sender: FDA-Public Use
  Company Number: US-BOEHRINGER INGELHEIM PHARMACEUTICALS, INC.-2003-BP-03153BP

PATIENT
  Sex: Male
  Weight: 101 kg

DRUGS (8)
  1. MICARDIS [Suspect]
     Indication: CARDIOVASCULAR DISORDER
     Route: 048
     Dates: start: 20021009
  2. MICARDIS [Suspect]
     Indication: CEREBROVASCULAR ACCIDENT PROPHYLAXIS
  3. RAMIPRIL [Suspect]
     Indication: CARDIOVASCULAR DISORDER
     Route: 048
     Dates: start: 20021009
  4. RAMIPRIL [Suspect]
     Indication: CEREBROVASCULAR ACCIDENT PROPHYLAXIS
  5. CHLORTHALIDONE [Suspect]
     Indication: HYPOTENSION
     Route: 065
  6. ATENOLOL [Suspect]
     Indication: HYPOTENSION
     Route: 065
  7. ASPIRIN [Concomitant]
  8. MEVACOR [Concomitant]

REACTIONS (6)
  - CERVICAL VERTEBRAL FRACTURE [None]
  - DEHYDRATION [None]
  - FALL [None]
  - HEAD INJURY [None]
  - HYPOTENSION [None]
  - SYNCOPE [None]
